FAERS Safety Report 21645801 (Version 2)
Quarter: 2022Q4

REPORT INFORMATION
  Report Type: Spontaneous
  Country: US (occurrence: US)
  Receive Date: 20221126
  Receipt Date: 20221226
  Transmission Date: 20230113
  Serious: No
  Sender: FDA-Public Use
  Company Number: US-SA-SAC20221123001045

PATIENT
  Age: 31 Year
  Sex: Male
  Weight: 70.306 kg

DRUGS (6)
  1. DUPIXENT [Suspect]
     Active Substance: DUPILUMAB
     Indication: Dermatitis atopic
     Dosage: 300 MG, QOW
     Route: 058
     Dates: start: 20220727
  2. MAGNESIUM [Concomitant]
     Active Substance: MAGNESIUM
     Dosage: UNK
  3. ELIDEL [Concomitant]
     Active Substance: PIMECROLIMUS
     Dosage: UNK
  4. TACROLIMUS [Concomitant]
     Active Substance: TACROLIMUS
     Dosage: UNK
  5. HYDROXYZINE [Concomitant]
     Active Substance: HYDROXYZINE HYDROCHLORIDE
     Dosage: UNK
  6. HYDROXYZINE HYDROCHLORIDE [Concomitant]
     Active Substance: HYDROXYZINE HYDROCHLORIDE
     Dosage: UNK

REACTIONS (6)
  - Injection site pain [Unknown]
  - Injection site vesicles [Recovered/Resolved]
  - Hand-foot-and-mouth disease [Recovered/Resolved]
  - Condition aggravated [Recovered/Resolved]
  - Erythema [Unknown]
  - Urticaria [Unknown]
